FAERS Safety Report 4814791-9 (Version None)
Quarter: 2005Q4

REPORT INFORMATION
  Report Type: 
  Country: None (occurrence: None)
  Receive Date: 20051028
  Receipt Date: 20050721
  Transmission Date: 20060501
  Serious: Yes (Disabling, Other)
  Sender: FDA-Public Use
  Company Number: PHFR2005GB02542

PATIENT
  Age: 84 Year
  Sex: Female

DRUGS (1)
  1. ZOMETA [Suspect]
     Indication: MULTIPLE MYELOMA
     Dosage: 90 MG, QMO
     Route: 042
     Dates: start: 20030819, end: 20050601

REACTIONS (6)
  - BLOOD IMMUNOGLOBULIN G INCREASED [None]
  - FALL [None]
  - HAEMOGLOBIN DECREASED [None]
  - OSTEONECROSIS [None]
  - TOOTH DISORDER [None]
  - TOOTH INJURY [None]
